FAERS Safety Report 11558752 (Version 1)
Quarter: 2015Q3

REPORT INFORMATION
  Report Type: Spontaneous
  Country: US (occurrence: US)
  Receive Date: 20150928
  Receipt Date: 20150928
  Transmission Date: 20151125
  Serious: Yes (Death, Hospitalization, Other)
  Sender: FDA-Public Use
  Company Number: US-ALEMBIC PHARMACUETICALS LIMITED-2015SCAL000640

PATIENT

DRUGS (1)
  1. QUETIAPINE FUMARATE. [Suspect]
     Active Substance: QUETIAPINE FUMARATE
     Indication: PRODUCT USED FOR UNKNOWN INDICATION
     Dosage: UNK

REACTIONS (10)
  - Endotracheal intubation [Unknown]
  - Syncope [Unknown]
  - Death [Fatal]
  - Lethargy [Unknown]
  - Drug abuse [Unknown]
  - Somnolence [Unknown]
  - Hypotension [Unknown]
  - Electrocardiogram change [Unknown]
  - Respiratory depression [Unknown]
  - Seizure [Unknown]
